FAERS Safety Report 20169722 (Version 1)
Quarter: 2021Q4

REPORT INFORMATION
  Report Type: Spontaneous
  Country: MT (occurrence: MT)
  Receive Date: 20211210
  Receipt Date: 20211210
  Transmission Date: 20220303
  Serious: Yes (Hospitalization)
  Sender: FDA-Public Use
  Company Number: None

PATIENT
  Age: 75 Year
  Sex: Male
  Weight: 70 kg

DRUGS (5)
  1. INVANZ [Suspect]
     Active Substance: ERTAPENEM SODIUM
     Indication: Spinal cord infection
     Dosage: 1G DAILY (Q24H) IV
     Route: 042
     Dates: start: 20210716, end: 20211110
  2. RIVAROXABAN [Concomitant]
     Active Substance: RIVAROXABAN
     Indication: Atrial fibrillation
     Dosage: 20MG DIALY (Q24H) PO, PRODUCT NAME : RIVAROLTO
     Route: 048
  3. BUMETANIDE [Concomitant]
     Active Substance: BUMETANIDE
     Indication: Cardiac failure
     Dosage: 1 GRAM, Q24H, 1MG DAILY PO
  4. LINEZOLID [Concomitant]
     Active Substance: LINEZOLID
     Indication: Spinal cord infection
     Dosage: 600MG 12 HOURLY (Q12H) IV
     Dates: start: 20211103, end: 20211110
  5. POTASSIUM CHLORIDE [Concomitant]
     Active Substance: POTASSIUM CHLORIDE
     Indication: Hypokalaemia
     Dosage: 2 TABLETS BD PO, PRODUCT NAME : SANDOZ POTASSIUM CHLORIDE
     Dates: start: 20211025, end: 20211028

REACTIONS (1)
  - Confusional state [Recovering/Resolving]

NARRATIVE: CASE EVENT DATE: 20211108
